FAERS Safety Report 8371831-0 (Version None)
Quarter: 2012Q2

REPORT INFORMATION
  Report Type: 
  Country: None (occurrence: None)
  Receive Date: 20120518
  Receipt Date: 20120516
  Transmission Date: 20120825
  Serious: Yes (Other)
  Sender: FDA-Public Use
  Company Number: US-ROCHE-1040797

PATIENT
  Weight: 127.12 kg

DRUGS (9)
  1. VENTOLIN HFA [Concomitant]
  2. SYNTHROID [Concomitant]
  3. CARDIZEM [Concomitant]
  4. FLOVENT [Concomitant]
  5. DIGOXIN [Concomitant]
  6. SINGULAIR [Concomitant]
  7. ALBUTEROL [Concomitant]
  8. CELEXA [Concomitant]
  9. XOLAIR [Suspect]
     Indication: ASTHMA
     Route: 058
     Dates: start: 20111206

REACTIONS (1)
  - INTRACRANIAL ANEURYSM [None]
